FAERS Safety Report 7767045-5 (Version None)
Quarter: 2011Q3

REPORT INFORMATION
  Report Type: 
  Country: None (occurrence: None)
  Receive Date: 20110922
  Receipt Date: 20110222
  Transmission Date: 20111222
  Serious: No
  Sender: FDA-Public Use
  Company Number: US-ASTRAZENECA-2010SE61429

PATIENT
  Age: 43 Year
  Sex: Female

DRUGS (7)
  1. HYDROCODONE BITARTRATE AND ACETAMINOPHEN [Concomitant]
  2. SEROQUEL [Suspect]
     Route: 048
  3. LAMOTRIGINE [Concomitant]
  4. PAROZETINE [Concomitant]
  5. CITALOPRAM HYDROBROMIDE [Concomitant]
  6. HYDRALAZINE HCL [Concomitant]
  7. HYDROCHLOROTHIAZIDE [Concomitant]

REACTIONS (4)
  - HEADACHE [None]
  - STRESS [None]
  - MALAISE [None]
  - DRUG DOSE OMISSION [None]
